FAERS Safety Report 10428501 (Version 9)
Quarter: 2017Q4

REPORT INFORMATION
  Report Type: Spontaneous
  Country: CA (occurrence: CA)
  Receive Date: 20140903
  Receipt Date: 20171031
  Transmission Date: 20180320
  Serious: Yes (Other)
  Sender: FDA-Public Use
  Company Number: CA-GLAXOSMITHKLINE-A1021521A

PATIENT
  Age: 49 Year
  Sex: Female

DRUGS (4)
  1. BENLYSTA [Suspect]
     Active Substance: BELIMUMAB
     Dosage: 658 MG, UNK
     Dates: start: 20170504, end: 20170504
  2. BENLYSTA [Suspect]
     Active Substance: BELIMUMAB
     Dosage: 716 MG, UNK
     Dates: start: 20171025
  3. BENLYSTA [Suspect]
     Active Substance: BELIMUMAB
     Dosage: 640 MG, UNK
  4. BENLYSTA [Suspect]
     Active Substance: BELIMUMAB
     Indication: SYSTEMIC LUPUS ERYTHEMATOSUS
     Dosage: 610 MG INSUSION ON WEEK 0,2 4 AND THEN EVERY 4 WEEKS
     Route: 042
     Dates: start: 20120731, end: 20130403

REACTIONS (12)
  - Mental disorder [Unknown]
  - Bursitis [Unknown]
  - Influenza [Unknown]
  - Shoulder operation [Unknown]
  - Depression [Unknown]
  - Limb injury [Unknown]
  - Surgery [Unknown]
  - Joint injury [Unknown]
  - Impaired work ability [Unknown]
  - Foot operation [Unknown]
  - Ill-defined disorder [Recovered/Resolved]
  - Malaise [Unknown]

NARRATIVE: CASE EVENT DATE: 20170602
